FAERS Safety Report 9912499 (Version 3)
Quarter: 2014Q1

REPORT INFORMATION
  Report Type: Report from Study
  Country: CA (occurrence: CA)
  Receive Date: 20140220
  Receipt Date: 20140311
  Transmission Date: 20141002
  Serious: Yes (Life-Threatening, Hospitalization)
  Sender: FDA-Public Use
  Company Number: CA-BRISTOL-MYERS SQUIBB COMPANY-19853142

PATIENT
  Age: 38 Year
  Sex: Male

DRUGS (10)
  1. ORENCIA [Suspect]
     Indication: RHEUMATOID ARTHRITIS
     Dosage: 1DF=1000 UNIT NOS?EXP DT: JUL16
     Dates: start: 20130214
  2. INSULIN [Concomitant]
  3. CELEBREX [Concomitant]
  4. FOLIC ACID [Concomitant]
  5. PANTOLOC [Concomitant]
  6. METHOTREXATE [Concomitant]
  7. METFORMIN [Concomitant]
  8. PREDNISONE [Concomitant]
  9. PERCOCET [Concomitant]
  10. TYLENOL #3 [Concomitant]

REACTIONS (7)
  - Adverse event [Unknown]
  - Haematochezia [Recovering/Resolving]
  - Diarrhoea [Recovering/Resolving]
  - Vomiting [Recovering/Resolving]
  - Oxygen saturation decreased [Recovering/Resolving]
  - Rales [Recovering/Resolving]
  - Pneumonia [Unknown]
